FAERS Safety Report 4664726-7 (Version None)
Quarter: 2005Q2

REPORT INFORMATION
  Report Type: 
  Country: None (occurrence: None)
  Receive Date: 20050517
  Receipt Date: 20050517
  Transmission Date: 20051028
  Serious: Yes (Other)
  Sender: FDA-Public Use
  Company Number: None

PATIENT
  Sex: Female

DRUGS (1)
  1. ALDARA [Suspect]
     Indication: CHEILITIS
     Dosage: ONE TIME DAILY
     Dates: start: 20041105, end: 20050401

REACTIONS (2)
  - IRITIS [None]
  - RASH SCARLATINIFORM [None]
